FAERS Safety Report 7366776-9 (Version None)
Quarter: 2011Q1

REPORT INFORMATION
  Report Type: 
  Country: None (occurrence: None)
  Receive Date: 20110322
  Receipt Date: 20110311
  Transmission Date: 20110831
  Serious: Yes (Death, Other)
  Sender: FDA-Public Use
  Company Number: GT-PFIZER INC-2011061479

PATIENT
  Sex: Female

DRUGS (1)
  1. PANTECTA [Suspect]
     Dosage: 20 MG, UNK

REACTIONS (1)
  - NEOPLASM MALIGNANT [None]
